FAERS Safety Report 14313644 (Version 3)
Quarter: 2018Q2

REPORT INFORMATION
  Report Type: Spontaneous
  Country: CH (occurrence: CH)
  Receive Date: 20171221
  Receipt Date: 20180522
  Transmission Date: 20180711
  Serious: Yes (Life-Threatening, Hospitalization, Other)
  Sender: FDA-Public Use
  Company Number: CH-PFIZER INC-2017541711

PATIENT
  Age: 80 Year
  Sex: Male

DRUGS (8)
  1. DIFLUCAN [Suspect]
     Active Substance: FLUCONAZOLE
     Indication: ANTIFUNGAL PROPHYLAXIS
     Dosage: 400MG, 1X/DAY
     Route: 048
     Dates: start: 20171117, end: 20171204
  2. BACTRIM [Suspect]
     Active Substance: SULFAMETHOXAZOLE\TRIMETHOPRIM
     Indication: ANTIBIOTIC PROPHYLAXIS
     Dosage: EVERY ALTERNATE DAY (CORRECT DOSE: 800/160 MG CORRECT FREQUENCY: ONCE DAILY MONDAY/WEDNESDAY/FRIDAY
     Route: 041
     Dates: start: 20171117, end: 20171204
  3. CALCIMAGON D3 [Concomitant]
     Active Substance: CALCIUM\CHOLECALCIFEROL
     Dosage: 500MG/800 U, 1X/DAY (1-0-0-0)
     Route: 048
  4. TAVANIC [Suspect]
     Active Substance: LEVOFLOXACIN
     Indication: ANTIBIOTIC PROPHYLAXIS
     Dosage: 500MG, 1X/DAY
     Route: 048
     Dates: start: 20171117, end: 20171205
  5. ZOLDORM [Concomitant]
     Active Substance: ZOLPIDEM TARTRATE
     Dosage: 5MG, 1X/DAY (10MG: 0-0-0-0.5)
     Route: 048
  6. DACOGEN [Suspect]
     Active Substance: DECITABINE
     Indication: ACUTE MYELOID LEUKAEMIA
     Dosage: 20MG/M2, 1X/DAY
     Route: 041
     Dates: start: 20171120, end: 20171124
  7. ACIDUM FOLICUM STREULI [Concomitant]
     Active Substance: FOLIC ACID
     Dosage: 5MG, 1X/DAY (1-0-0-0)
     Route: 048
  8. PANTOPRAZOL SANDOZ [Concomitant]
     Active Substance: PANTOPRAZOLE SODIUM
     Dosage: 20MG, 1X/DAY (1-0-0-0)
     Route: 048

REACTIONS (5)
  - Pancytopenia [Recovered/Resolved]
  - Cough [Recovered/Resolved]
  - Femoral neck fracture [Unknown]
  - Pyrexia [Recovered/Resolved]
  - Fall [Unknown]

NARRATIVE: CASE EVENT DATE: 201711
